FAERS Safety Report 23571345 (Version 3)
Quarter: 2024Q2

REPORT INFORMATION
  Report Type: Report from Study
  Country: US (occurrence: US)
  Receive Date: 20240227
  Receipt Date: 20240607
  Transmission Date: 20240716
  Serious: Yes (Congenital Anomaly, Other)
  Sender: FDA-Public Use
  Company Number: US-DRL-USA-CLI/USA/24/0003504

PATIENT
  Age: 4 Year
  Sex: Female
  Weight: 3.2 kg

DRUGS (2)
  1. LATUDA [Suspect]
     Active Substance: LURASIDONE HYDROCHLORIDE
     Indication: Foetal exposure during pregnancy
     Dosage: BRAND NAME LATUDA WAS PROVIDED WHICH IS NON-DRL SUSPECT PRODUCT
     Route: 064
  2. LATUDA [Suspect]
     Active Substance: LURASIDONE HYDROCHLORIDE
     Indication: Foetal exposure during pregnancy
     Dosage: BRAND NAME LATUDA WAS PROVIDED WHICH IS NON-DRL SUSPECT PRODUCT
     Route: 064

REACTIONS (3)
  - Congenital hydronephrosis [Unknown]
  - Foetal exposure during pregnancy [Unknown]
  - Tethered oral tissue [Unknown]

NARRATIVE: CASE EVENT DATE: 20200630
